FAERS Safety Report 5941702-5 (Version None)
Quarter: 2008Q4

REPORT INFORMATION
  Report Type: 
  Country: None (occurrence: None)
  Receive Date: 20081105
  Receipt Date: 20081027
  Transmission Date: 20090506
  Serious: Yes (Hospitalization)
  Sender: FDA-Public Use
  Company Number: DE-ROCHE-593451

PATIENT
  Sex: Female

DRUGS (7)
  1. BONIVA [Suspect]
     Dosage: FREQUENCY: DAILY
     Route: 048
     Dates: start: 20080731, end: 20081019
  2. BONIVA [Suspect]
     Route: 048
     Dates: start: 20081022, end: 20081024
  3. CAPECITABINE [Suspect]
     Route: 048
     Dates: start: 20080521, end: 20080731
  4. EPIRUBICIN [Suspect]
     Route: 042
     Dates: start: 20080327, end: 20080508
  5. CYCLOPHOSPHAMIDE [Suspect]
     Route: 042
     Dates: start: 20080327, end: 20080508
  6. PACLITAXEL [Suspect]
     Route: 042
     Dates: start: 20080521, end: 20080731
  7. NEORECORMON [Concomitant]
     Dosage: FREQUENCY :PRN
     Route: 058
     Dates: start: 20080327, end: 20080731

REACTIONS (1)
  - CHEST PAIN [None]
